FAERS Safety Report 5594434-X (Version None)
Quarter: 2008Q1

REPORT INFORMATION
  Report Type: 
  Country: None (occurrence: None)
  Receive Date: 20080117
  Receipt Date: 20080110
  Transmission Date: 20080703
  Serious: Yes (Death, Hospitalization, Other)
  Sender: FDA-Public Use
  Company Number: CO-BRACCO-BRO-012301

PATIENT
  Age: 34 Year
  Sex: Female

DRUGS (4)
  1. IOPAMIDOL [Suspect]
     Indication: SPINAL MYELOGRAM
     Route: 037
     Dates: start: 20071023, end: 20071023
  2. IOPAMIDOL [Suspect]
     Indication: BACK PAIN
     Route: 037
     Dates: start: 20071023, end: 20071023
  3. DOPAMINE HCL [Concomitant]
     Route: 065
     Dates: start: 20071023, end: 20071023
  4. ADRENALINE [Concomitant]
     Route: 065
     Dates: start: 20071023

REACTIONS (3)
  - ASPIRATION BRONCHIAL [None]
  - CARDIO-RESPIRATORY ARREST [None]
  - TONIC CONVULSION [None]
